FAERS Safety Report 4330415-1 (Version None)
Quarter: 2004Q2

REPORT INFORMATION
  Report Type: 
  Country: None (occurrence: None)
  Receive Date: 20040402
  Receipt Date: 20030307
  Transmission Date: 20050107
  Serious: No
  Sender: FDA-Public Use
  Company Number: US-BRISTOL-MYERS SQUIBB COMPANY-12205506

PATIENT
  Age: 89 Year
  Sex: Female
  Weight: 77 kg

DRUGS (4)
  1. HYDREA [Suspect]
     Indication: PLATELET COUNT INCREASED
     Route: 048
     Dates: start: 20000101, end: 20030201
  2. DIURETIC [Concomitant]
  3. COUMADIN [Concomitant]
  4. HYPERTENSION MEDICATION [Concomitant]

REACTIONS (3)
  - OEDEMA PERIPHERAL [None]
  - PAIN [None]
  - SKIN ULCER [None]
